FAERS Safety Report 8412326-5 (Version None)
Quarter: 2012Q2

REPORT INFORMATION
  Report Type: 
  Country: None (occurrence: None)
  Receive Date: 20120605
  Receipt Date: 20120515
  Transmission Date: 20120825
  Serious: No
  Sender: FDA-Public Use
  Company Number: US-AMGEN-USASP2012030560

PATIENT
  Age: 62 Year
  Sex: Female

DRUGS (2)
  1. ENBREL [Suspect]
     Indication: RHEUMATOID ARTHRITIS
     Dosage: 50 MG, QWK
     Dates: start: 20111215
  2. METHOTREXATE [Concomitant]
     Dosage: UNK
     Dates: start: 20020101

REACTIONS (5)
  - ASTHENIA [None]
  - GAIT DISTURBANCE [None]
  - BONE DISORDER [None]
  - RHEUMATOID ARTHRITIS [None]
  - TRIGGER FINGER [None]
